FAERS Safety Report 5597083-2 (Version None)
Quarter: 2008Q1

REPORT INFORMATION
  Report Type: 
  Country: None (occurrence: None)
  Receive Date: 20080121
  Receipt Date: 20080117
  Transmission Date: 20080703
  Serious: Yes (Life-Threatening)
  Sender: FDA-Public Use
  Company Number: PHFR2008GB00594

PATIENT
  Age: 37 Year
  Sex: Male

DRUGS (1)
  1. GLEEVEC [Suspect]
     Indication: CHRONIC MYELOID LEUKAEMIA
     Dosage: 800MG / DAY
     Route: 065
     Dates: start: 20070501, end: 20071001

REACTIONS (2)
  - HEPATIC NECROSIS [None]
  - LIVER FUNCTION TEST ABNORMAL [None]
